FAERS Safety Report 25634332 (Version 5)
Quarter: 2025Q3

REPORT INFORMATION
  Report Type: Report from Study
  Country: US (occurrence: US)
  Receive Date: 20250801
  Receipt Date: 20250925
  Transmission Date: 20251021
  Serious: Yes (Hospitalization)
  Sender: MALLINCKRODT
  Company Number: US-MALLINCKRODT-MNK202504636

PATIENT
  Age: 7 Month
  Sex: Male
  Weight: 7 kg

DRUGS (2)
  1. CORTICOTROPIN [Suspect]
     Active Substance: CORTICOTROPIN
     Indication: Infantile spasms
     Route: 030
     Dates: start: 20250724, end: 202507
  2. CORTICOTROPIN [Suspect]
     Active Substance: CORTICOTROPIN
     Dosage: 5.6 UNITS
     Route: 030
     Dates: start: 2025

REACTIONS (11)
  - Hospitalisation [Unknown]
  - Pollakiuria [Unknown]
  - Frequent bowel movements [Unknown]
  - Feeling jittery [Unknown]
  - Tremor [Unknown]
  - Hypersomnia [Unknown]
  - Increased appetite [Unknown]
  - Fatigue [Unknown]
  - Withdrawal syndrome [Unknown]
  - Irritability [Unknown]
  - Absence of immediate treatment response [Recovered/Resolved]

NARRATIVE: CASE EVENT DATE: 20250101
